FAERS Safety Report 7424161-5 (Version None)
Quarter: 2011Q2

REPORT INFORMATION
  Report Type: 
  Country: None (occurrence: None)
  Receive Date: 20110419
  Receipt Date: 20110401
  Transmission Date: 20111010
  Serious: Yes (Other)
  Sender: FDA-Public Use
  Company Number: BR-MERCK-1104BRA00010

PATIENT

DRUGS (1)
  1. JANUVIA [Suspect]
     Route: 065
     Dates: end: 20110401

REACTIONS (1)
  - BLOOD CREATINE PHOSPHOKINASE INCREASED [None]
